FAERS Safety Report 7593920-0 (Version None)
Quarter: 2011Q3

REPORT INFORMATION
  Report Type: 
  Country: None (occurrence: None)
  Receive Date: 20110706
  Receipt Date: 20110622
  Transmission Date: 20111222
  Serious: No
  Sender: FDA-Public Use
  Company Number: US-B.I. PHARMACEUTICALS,INC./RIDGEFIELD-2011-BP-15998BP

PATIENT
  Age: 80 Year
  Sex: Male

DRUGS (2)
  1. PENTASE [Concomitant]
     Indication: CROHN'S DISEASE
  2. PRADAXA [Suspect]
     Indication: ATRIAL FIBRILLATION
     Dosage: 300 MG
     Route: 048
     Dates: start: 20110619

REACTIONS (2)
  - CHEST DISCOMFORT [None]
  - DYSPEPSIA [None]
